FAERS Safety Report 8934524 (Version 1)
Quarter: 2012Q4

REPORT INFORMATION
  Report Type: 
  Country: US (occurrence: US)
  Receive Date: 20121129
  Receipt Date: 20121129
  Transmission Date: 20130627
  Serious: No
  Sender: FDA-Public Use
  Company Number: US-GLAXOSMITHKLINE-A0974358A

PATIENT
  Age: 52 Year
  Sex: Female

DRUGS (25)
  1. FLOVENT [Suspect]
     Indication: ASTHMA
     Dosage: 1PUFF Twice per day
     Route: 055
     Dates: start: 2012, end: 2012
  2. ALBUTEROL [Concomitant]
  3. ALDACTONE [Concomitant]
  4. ALLEGRA [Concomitant]
  5. ASPIRIN [Concomitant]
  6. B6 [Concomitant]
  7. COMPAZINE [Concomitant]
  8. COREG [Concomitant]
  9. WARFARIN [Concomitant]
  10. CYCLOBENZAPRINE [Concomitant]
  11. FENTRINOL [Concomitant]
  12. FLONASE [Concomitant]
  13. IRON [Concomitant]
  14. LASIX [Concomitant]
  15. LEVOTHYROXINE [Concomitant]
  16. LISINOPRIL [Concomitant]
  17. MICRO K [Concomitant]
  18. MULTI VITAMIN [Concomitant]
  19. NAPOSIN [Concomitant]
  20. PERCOCET [Concomitant]
  21. PREMPRO [Concomitant]
  22. PROCHLORPERAZINE [Concomitant]
  23. XANAX [Concomitant]
  24. FIBER SUPPLEMENT [Concomitant]
  25. UNKNOWN MEDICATION [Concomitant]

REACTIONS (4)
  - Cough [Unknown]
  - Dry mouth [Unknown]
  - Feeling hot [Unknown]
  - Drug ineffective [Unknown]
